FAERS Safety Report 21327233 (Version 1)
Quarter: 2022Q3

REPORT INFORMATION
  Report Type: Other
  Country: DE (occurrence: None)
  Receive Date: 20220913
  Receipt Date: 20220913
  Transmission Date: 20221026
  Serious: No
  Sender: FDA-Public Use
  Company Number: DE-ROCHE-3066277

PATIENT
  Sex: Female

DRUGS (3)
  1. OCRELIZUMAB [Suspect]
     Active Substance: OCRELIZUMAB
     Indication: Primary progressive multiple sclerosis
     Route: 042
     Dates: start: 20190211, end: 20190301
  2. OCRELIZUMAB [Suspect]
     Active Substance: OCRELIZUMAB
     Route: 042
     Dates: start: 20190829
  3. CHOLECALCIFEROL [Concomitant]
     Active Substance: CHOLECALCIFEROL
     Route: 048
     Dates: start: 20190612

REACTIONS (2)
  - COVID-19 [Recovered/Resolved]
  - Dizziness [Not Recovered/Not Resolved]

NARRATIVE: CASE EVENT DATE: 20220807
